FAERS Safety Report 12316649 (Version 2)
Quarter: 2016Q3

REPORT INFORMATION
  Report Type: Report from Study
  Country: FR (occurrence: FR)
  Receive Date: 20160429
  Receipt Date: 20160812
  Transmission Date: 20161109
  Serious: Yes (Other)
  Sender: FDA-Public Use
  Company Number: FR-ROCHE-1748505

PATIENT

DRUGS (5)
  1. 5-FLUOROURACIL [Suspect]
     Active Substance: FLUOROURACIL
     Indication: COLORECTAL CANCER METASTATIC
     Dosage: 5- FU(5- FLUOROURACIL) 2400 MG/ M2 CONTINUOUS INFUSION OVER 46- H IN FUPEP ARM; IN REGIMEN OF FOLFIR
     Route: 065
  2. IRINOTECAN [Suspect]
     Active Substance: IRINOTECAN
     Indication: COLORECTAL CANCER METASTATIC
     Dosage: IN FOLFIRI- 1 ARM, IRINOTECAN 180 MG/ M2 IV OVER 90 MIN; IN FOLFIRI- 3 ARM, IRINOTECAN 90 MG/M2 AS 1
     Route: 042
  3. FOLINIC ACID [Suspect]
     Active Substance: LEUCOVORIN
     Indication: COLORECTAL CANCER METASTATIC
     Dosage: OVER 2- H
     Route: 042
  4. PEP02 [Suspect]
     Active Substance: IRINOTECAN SUCROSOFATE
     Indication: COLORECTAL CANCER METASTATIC
     Dosage: OVE 90 MIN
     Route: 042
  5. BEVACIZUMAB [Suspect]
     Active Substance: BEVACIZUMAB
     Indication: COLORECTAL CANCER METASTATIC
     Route: 065

REACTIONS (5)
  - Anaemia [Unknown]
  - Stomatitis [Unknown]
  - Nausea [Unknown]
  - Diarrhoea [Unknown]
  - Neutropenia [Unknown]
